FAERS Safety Report 6292858-9 (Version None)
Quarter: 2009Q3

REPORT INFORMATION
  Report Type: 
  Country: None (occurrence: None)
  Receive Date: 20090731
  Receipt Date: 20090724
  Transmission Date: 20100115
  Serious: Yes (Hospitalization)
  Sender: FDA-Public Use
  Company Number: PHHY2009JP29152

PATIENT
  Age: 65 Year
  Sex: Female

DRUGS (4)
  1. DICLOFENAC SODIUM [Suspect]
     Indication: HERPES ZOSTER
     Dosage: UNK
     Route: 048
     Dates: start: 20070101
  2. GABAPENTIN [Concomitant]
     Indication: POST HERPETIC NEURALGIA
  3. AMITRIPTYLINE HCL [Concomitant]
     Indication: POST HERPETIC NEURALGIA
  4. LIDOCAINE [Concomitant]

REACTIONS (5)
  - ANAEMIA [None]
  - HYPOPROTEINAEMIA [None]
  - OEDEMA PERIPHERAL [None]
  - PROTEIN-LOSING GASTROENTEROPATHY [None]
  - WEIGHT DECREASED [None]
